FAERS Safety Report 9644521 (Version 2)
Quarter: 2013Q4

REPORT INFORMATION
  Report Type: Spontaneous
  Country: GR (occurrence: GR)
  Receive Date: 20131025
  Receipt Date: 20131101
  Transmission Date: 20140711
  Serious: Yes (Other)
  Sender: FDA-Public Use
  Company Number: GR-AMGEN-GRCSP2013075475

PATIENT
  Age: 67 Year
  Sex: Female

DRUGS (4)
  1. ENBREL [Suspect]
     Indication: RHEUMATOID ARTHRITIS
     Dosage: 50 MG, WEEKLY
     Route: 065
     Dates: start: 201210
  2. METHOTREXATE [Concomitant]
     Dosage: UNK
  3. MEDROL                             /00049601/ [Concomitant]
     Dosage: UNK
  4. LASIX                              /00032601/ [Concomitant]
     Dosage: UNK

REACTIONS (3)
  - Memory impairment [Not Recovered/Not Resolved]
  - Hyporesponsive to stimuli [Not Recovered/Not Resolved]
  - CSF test abnormal [Not Recovered/Not Resolved]
